FAERS Safety Report 14243289 (Version 1)
Quarter: 2017Q4

REPORT INFORMATION
  Report Type: Spontaneous
  Country: US (occurrence: US)
  Receive Date: 20171201
  Receipt Date: 20171201
  Transmission Date: 20180321
  Serious: No
  Sender: FDA-Public Use
  Company Number: US-TEVA-813098ACC

PATIENT
  Sex: Female

DRUGS (1)
  1. MUPIROCIN. [Suspect]
     Active Substance: MUPIROCIN
     Indication: CARDIOVASCULAR EVENT PROPHYLAXIS
     Dates: start: 20170929, end: 20171002

REACTIONS (6)
  - Oropharyngeal pain [Recovered/Resolved]
  - Incorrect route of drug administration [Unknown]
  - Rhinorrhoea [Recovered/Resolved]
  - Oral fungal infection [Recovered/Resolved]
  - Drug prescribing error [Unknown]
  - Product use in unapproved indication [Unknown]

NARRATIVE: CASE EVENT DATE: 20170929
